FAERS Safety Report 5464346-0 (Version None)
Quarter: 2007Q3

REPORT INFORMATION
  Report Type: 
  Country: None (occurrence: None)
  Receive Date: 20070921
  Receipt Date: 20070911
  Transmission Date: 20080115
  Serious: Yes (Other)
  Sender: FDA-Public Use
  Company Number: FR-ROCHE-507382

PATIENT
  Age: 62 Year
  Sex: Female
  Weight: 70 kg

DRUGS (7)
  1. BONIVA [Suspect]
     Indication: OSTEOPOROSIS
     Route: 048
     Dates: start: 20070510, end: 20070601
  2. OROCAL [Concomitant]
     Indication: CALCIUM DEFICIENCY
     Dosage: INDICATION: CALCIUM AND VITAMINE DEFICIENCY.
     Route: 048
     Dates: start: 20050101
  3. UVEDOSE [Concomitant]
     Indication: CALCIUM DEFICIENCY
     Dosage: FORM: VIAL. INDICATION: CALCIUM AND VITAMINE DEFICIENCY.
     Route: 048
     Dates: start: 20070501
  4. SKENAN [Concomitant]
     Dosage: THERAPY WAS STOPPED A FEW TIMES AFTER THE BEGINNING OF THE ADVERSE EFFECTS.
     Route: 048
     Dates: start: 20070501
  5. CARTREX [Concomitant]
     Route: 048
     Dates: start: 20050101
  6. ISOBAR [Concomitant]
     Route: 048
     Dates: start: 20050101
  7. LEVOTHYROX [Concomitant]
     Indication: HYPERTHYROIDISM
     Route: 048
     Dates: start: 20050101

REACTIONS (7)
  - ABDOMINAL PAIN [None]
  - ABDOMINAL PAIN UPPER [None]
  - DIARRHOEA [None]
  - DYSPNOEA [None]
  - HEADACHE [None]
  - NAUSEA [None]
  - VOMITING [None]
